FAERS Safety Report 6171413-5 (Version None)
Quarter: 2009Q2

REPORT INFORMATION
  Report Type: 
  Country: None (occurrence: None)
  Receive Date: 20090429
  Receipt Date: 20090310
  Transmission Date: 20091009
  Serious: No
  Sender: FDA-Public Use
  Company Number: US-BAYER-200915157NA

PATIENT
  Age: 28 Year
  Sex: Female

DRUGS (2)
  1. YAZ [Suspect]
     Indication: CONTRACEPTION
     Route: 048
     Dates: start: 20081001, end: 20090101
  2. YAZ [Suspect]
     Dates: start: 20090101

REACTIONS (1)
  - HYPOMENORRHOEA [None]
